FAERS Safety Report 5032671-3 (Version None)
Quarter: 2006Q2

REPORT INFORMATION
  Report Type: 
  Country: None (occurrence: None)
  Receive Date: 20060620
  Receipt Date: 20060607
  Transmission Date: 20061013
  Serious: Yes (Hospitalization)
  Sender: FDA-Public Use
  Company Number: 2006058397

PATIENT
  Age: 61 Year
  Sex: Female
  Weight: 99.7913 kg

DRUGS (11)
  1. CELEBREX [Suspect]
     Indication: ILL-DEFINED DISORDER
     Dosage: 200 MG (200 MG, 1 IN 1 D)
  2. PLAVIX [Concomitant]
  3. HUMALOG [Concomitant]
  4. LANTUS [Concomitant]
  5. ADVAIR DISKUS 100/50 [Concomitant]
  6. ACTOS [Concomitant]
  7. PROTONIX [Concomitant]
  8. METFORMIN [Concomitant]
  9. CLONAZEPAM [Concomitant]
  10. ZOCOR [Concomitant]
  11. CELEXA [Concomitant]

REACTIONS (5)
  - ANGINA PECTORIS [None]
  - CARDIAC DISORDER [None]
  - CORONARY ARTERY RESTENOSIS [None]
  - DYSPNOEA [None]
  - PAIN [None]
